FAERS Safety Report 9625826 (Version 1)
Quarter: 2013Q4

REPORT INFORMATION
  Report Type: Report from Study
  Country: GB (occurrence: GB)
  Receive Date: 20131016
  Receipt Date: 20131016
  Transmission Date: 20140711
  Serious: Yes (Other)
  Sender: FDA-Public Use
  Company Number: GB-AMGEN-GBRCT2013072680

PATIENT
  Age: 55 Year
  Sex: Female

DRUGS (2)
  1. ETANERCEPT [Suspect]
     Indication: PRODUCT USED FOR UNKNOWN INDICATION
     Dosage: 25 MG, UNK
     Route: 065
     Dates: start: 20040901
  2. METHOTREXATE [Concomitant]
     Dosage: STARTED PRIOR TO ETANERCEPT

REACTIONS (1)
  - Breast cancer female [Unknown]
